FAERS Safety Report 21501233 (Version 4)
Quarter: 2023Q2

REPORT INFORMATION
  Report Type: Report from Study
  Country: IT (occurrence: IT)
  Receive Date: 20221025
  Receipt Date: 20230614
  Transmission Date: 20230721
  Serious: Yes (Hospitalization, Other)
  Sender: FDA-Public Use
  Company Number: IT-UCBSA-2022029571

PATIENT
  Age: 35 Year
  Sex: Male

DRUGS (3)
  1. LEVETIRACETAM [Suspect]
     Active Substance: LEVETIRACETAM
     Indication: Epilepsy
     Dosage: 3 TABLETS OF 500MG IN THE MORNING AND 3 TABLETS OF 500MG IN THE EVENING
  2. TEGRETOL [Concomitant]
     Active Substance: CARBAMAZEPINE
     Indication: Product used for unknown indication
     Dosage: UNK
  3. CENOBAMATE [Concomitant]
     Active Substance: CENOBAMATE
     Indication: Product used for unknown indication
     Dosage: UNK

REACTIONS (17)
  - Seizure [Unknown]
  - Spinal pain [Unknown]
  - Spinal cord injury [Unknown]
  - Petit mal epilepsy [Not Recovered/Not Resolved]
  - Coccygectomy [Unknown]
  - Groin pain [Not Recovered/Not Resolved]
  - Muscle strain [Not Recovered/Not Resolved]
  - Discomfort [Not Recovered/Not Resolved]
  - Drug resistance [Unknown]
  - Lung disorder [Unknown]
  - Cough [Unknown]
  - Sluggishness [Unknown]
  - Asthenia [Unknown]
  - SARS-CoV-2 test positive [Unknown]
  - COVID-19 [Recovered/Resolved]
  - Pelvic pain [Unknown]
  - Gait disturbance [Unknown]

NARRATIVE: CASE EVENT DATE: 20211101
